FAERS Safety Report 8150280-4 (Version None)
Quarter: 2012Q1

REPORT INFORMATION
  Report Type: 
  Country: None (occurrence: None)
  Receive Date: 20120220
  Receipt Date: 20120214
  Transmission Date: 20120608
  Serious: No
  Sender: FDA-Public Use
  Company Number: US-PFIZER INC-2012014749

PATIENT
  Sex: Female
  Weight: 61.224 kg

DRUGS (8)
  1. KEFLEX [Suspect]
     Dosage: UNK
  2. ERYTHROMYCIN [Suspect]
     Dosage: UNK
  3. CELEBREX [Suspect]
     Indication: ARTHRITIS
     Dosage: 100 MG, DAILY
  4. CARISOPRODOL [Concomitant]
     Indication: SLEEP DISORDER
     Dosage: DAILY
  5. METFORMIN [Concomitant]
     Indication: DIABETES MELLITUS
     Dosage: 500 MG, 2X/DAY
  6. CELEBREX [Suspect]
     Indication: SPINAL OSTEOARTHRITIS
  7. CLARITIN-D [Suspect]
     Indication: HYPERSENSITIVITY
     Dosage: UNK
  8. CELEBREX [Suspect]
     Indication: NECK PAIN

REACTIONS (4)
  - DRUG INEFFECTIVE [None]
  - HYPERTENSION [None]
  - THERAPEUTIC RESPONSE DECREASED [None]
  - NAUSEA [None]
